FAERS Safety Report 6107817-6 (Version None)
Quarter: 2009Q1

REPORT INFORMATION
  Report Type: 
  Country: None (occurrence: None)
  Receive Date: 20090309
  Receipt Date: 20090305
  Transmission Date: 20090719
  Serious: Yes (Death, Hospitalization)
  Sender: FDA-Public Use
  Company Number: B0563871A

PATIENT
  Age: 85 Year
  Sex: Female

DRUGS (11)
  1. ARIXTRA [Suspect]
     Route: 058
     Dates: start: 20090101, end: 20090104
  2. PLAVIX [Suspect]
     Route: 048
     Dates: start: 20090101, end: 20090104
  3. TROMBYL [Suspect]
     Indication: ANGINA PECTORIS
     Dosage: 75MG PER DAY
     Route: 048
     Dates: start: 20081201
  4. TOLTERODINE TARTRATE [Concomitant]
  5. NULYTELY [Concomitant]
  6. UNSPECIFIED DRUG [Concomitant]
  7. FURIX [Concomitant]
  8. NITROMEX [Concomitant]
     Route: 002
  9. IMDUR [Concomitant]
  10. TRIOBE [Concomitant]
  11. AVANDIA [Concomitant]

REACTIONS (2)
  - DEATH [None]
  - GASTROINTESTINAL HAEMORRHAGE [None]
